FAERS Safety Report 7627078-6 (Version None)
Quarter: 2011Q3

REPORT INFORMATION
  Report Type: 
  Country: None (occurrence: None)
  Receive Date: 20110721
  Receipt Date: 20110718
  Transmission Date: 20111222
  Serious: Yes (Life-Threatening)
  Sender: FDA-Public Use
  Company Number: CN-ASTRAZENECA-2011SE42455

PATIENT
  Age: 34 Year
  Sex: Female

DRUGS (1)
  1. LIDOCAINE [Suspect]
     Indication: ANAESTHESIA
     Route: 042

REACTIONS (6)
  - PULSE ABSENT [None]
  - BLOOD PRESSURE IMMEASURABLE [None]
  - RESPIRATORY ARREST [None]
  - PALLOR [None]
  - SLOW RESPONSE TO STIMULI [None]
  - STRABISMUS [None]
